FAERS Safety Report 16153184 (Version 1)
Quarter: 2019Q2

REPORT INFORMATION
  Report Type: Spontaneous
  Country: IT (occurrence: IT)
  Receive Date: 20190403
  Receipt Date: 20190403
  Transmission Date: 20190711
  Serious: Yes (Hospitalization)
  Sender: FDA-Public Use
  Company Number: IT-ACCORD-117916

PATIENT
  Age: 86 Year
  Sex: Male

DRUGS (10)
  1. XARELTO [Suspect]
     Active Substance: RIVAROXABAN
     Indication: MYOCARDIAL ISCHAEMIA
     Dosage: 15 MG FILM-COATED TABLETS
     Route: 048
     Dates: start: 20170101, end: 20190203
  2. MINITRAN [Concomitant]
     Active Substance: NITROGLYCERIN
  3. TELMISARTAN. [Concomitant]
     Active Substance: TELMISARTAN
     Dosage: 80 MG TABLETS
  4. BRETARIS GENUAIR [Concomitant]
     Active Substance: ACLIDINIUM BROMIDE
  5. CLOPIDOGREL [Suspect]
     Active Substance: CLOPIDOGREL BISULFATE
     Indication: MYOCARDIAL ISCHAEMIA
     Route: 048
     Dates: start: 20170101, end: 20190203
  6. DIAMICRON [Concomitant]
     Active Substance: GLICLAZIDE
  7. LASIX [Concomitant]
     Active Substance: FUROSEMIDE
  8. FOSTER [Concomitant]
     Active Substance: BECLOMETHASONE\FORMOTEROL
  9. OMEPRAZOLE. [Concomitant]
     Active Substance: OMEPRAZOLE
  10. CONGESCOR [Concomitant]
     Active Substance: BISOPROLOL

REACTIONS (1)
  - Haemoptysis [Unknown]

NARRATIVE: CASE EVENT DATE: 20190203
